FAERS Safety Report 8326619-3 (Version None)
Quarter: 2012Q2

REPORT INFORMATION
  Report Type: 
  Country: None (occurrence: None)
  Receive Date: 20120501
  Receipt Date: 20090827
  Transmission Date: 20120825
  Serious: No
  Sender: FDA-Public Use
  Company Number: US-TEVA-2009009988

PATIENT
  Sex: Female
  Weight: 72.64 kg

DRUGS (3)
  1. NUVIGIL [Suspect]
     Indication: NARCOLEPSY
     Dosage: 150 MILLIGRAM;
     Route: 048
     Dates: start: 20090730
  2. LEVOTHYROXINE SODIUM [Concomitant]
     Indication: THYROID DISORDER
  3. VITAMIN D [Concomitant]
     Indication: MIGRAINE

REACTIONS (3)
  - PSYCHOMOTOR HYPERACTIVITY [None]
  - PALPITATIONS [None]
  - DRUG TOLERANCE [None]
